FAERS Safety Report 9373871 (Version 3)
Quarter: 2013Q4

REPORT INFORMATION
  Report Type: Report from Study
  Country: DE (occurrence: DE)
  Receive Date: 20130628
  Receipt Date: 20131216
  Transmission Date: 20140711
  Serious: Yes (Death, Hospitalization)
  Sender: FDA-Public Use
  Company Number: DE-ROCHE-1242152

PATIENT
  Age: 69 Year
  Sex: Female
  Weight: 57.5 kg

DRUGS (2)
  1. TRASTUZUMAB EMTANSINE [Suspect]
     Indication: BREAST CANCER
     Dosage: RECEIVED ONLY ONE CYCLE
     Route: 042
     Dates: start: 20130611, end: 20130611
  2. MARCUMAR [Concomitant]
     Route: 065
     Dates: start: 201212, end: 20130616

REACTIONS (3)
  - Hepatic failure [Fatal]
  - Epistaxis [Fatal]
  - Renal failure [Fatal]
